FAERS Safety Report 7477530-1 (Version None)
Quarter: 2011Q2

REPORT INFORMATION
  Report Type: 
  Country: None (occurrence: None)
  Receive Date: 20110513
  Receipt Date: 20110428
  Transmission Date: 20111010
  Serious: Yes (Hospitalization, Other)
  Sender: FDA-Public Use
  Company Number: CA-ELI_LILLY_AND_COMPANY-CA201104008165

PATIENT
  Age: 32 Year
  Sex: Female

DRUGS (2)
  1. FORTEO [Suspect]
     Indication: OSTEOPOROSIS
     Dosage: 20 UG, QD
     Route: 058
     Dates: start: 20071016, end: 20090801
  2. FORTEO [Suspect]
     Dosage: UNK UNK, UNKNOWN
     Route: 065
     Dates: start: 20110421

REACTIONS (5)
  - EYE HAEMORRHAGE [None]
  - FRACTURED SACRUM [None]
  - RENAL FAILURE [None]
  - BLOOD DISORDER [None]
  - BLINDNESS UNILATERAL [None]
